FAERS Safety Report 25572258 (Version 2)
Quarter: 2025Q3

REPORT INFORMATION
  Report Type: Spontaneous
  Country: EU (occurrence: EU)
  Receive Date: 20250717
  Receipt Date: 20250814
  Transmission Date: 20251020
  Serious: No
  Sender: BAUSCH AND LOMB
  Company Number: EU-AMGEN-PRTSP2025130726

PATIENT
  Age: 61 Year
  Sex: Male

DRUGS (1)
  1. AZATHIOPRINE [Suspect]
     Active Substance: AZATHIOPRINE
     Indication: Autoinflammatory disease
     Route: 065

REACTIONS (1)
  - Pruritus [Unknown]
